FAERS Safety Report 24829346 (Version 3)
Quarter: 2025Q1

REPORT INFORMATION
  Report Type: Spontaneous
  Country: US (occurrence: US)
  Receive Date: 20250110
  Receipt Date: 20250116
  Transmission Date: 20250409
  Serious: Yes (Life-Threatening, Hospitalization, Other)
  Sender: ALEXION PHARMACEUTICALS
  Company Number: US-ASTRAZENECA-202412GLO021540US

PATIENT
  Age: 86 Year
  Weight: 87.5 kg

DRUGS (11)
  1. TRUQAP [Suspect]
     Active Substance: CAPIVASERTIB
     Indication: Breast cancer
     Dosage: 400 MILLIGRAM, BID
  2. TRUQAP [Suspect]
     Active Substance: CAPIVASERTIB
     Dosage: 400 MILLIGRAM, BID
     Route: 048
  3. TRUQAP [Suspect]
     Active Substance: CAPIVASERTIB
     Dosage: 400 MILLIGRAM, BID
  4. TRUQAP [Suspect]
     Active Substance: CAPIVASERTIB
     Dosage: 400 MILLIGRAM, BID
     Route: 048
  5. FULVESTRANT [Suspect]
     Active Substance: FULVESTRANT
     Route: 065
  6. FULVESTRANT [Suspect]
     Active Substance: FULVESTRANT
     Route: 065
  7. FULVESTRANT [Suspect]
     Active Substance: FULVESTRANT
     Route: 065
  8. FULVESTRANT [Suspect]
     Active Substance: FULVESTRANT
     Route: 065
  9. APIXABAN [Concomitant]
     Active Substance: APIXABAN
  10. BUMETANIDE [Concomitant]
     Active Substance: BUMETANIDE
  11. CETIRIZINE [Concomitant]
     Active Substance: CETIRIZINE HYDROCHLORIDE

REACTIONS (18)
  - Hyperglycaemic hyperosmolar nonketotic syndrome [Unknown]
  - Hyperglycaemia [Recovering/Resolving]
  - Pulmonary hypertension [Unknown]
  - Delirium [Unknown]
  - Cardiac failure congestive [Unknown]
  - Anaphylactic reaction [Unknown]
  - Altered state of consciousness [Unknown]
  - Presyncope [Unknown]
  - Nausea [Unknown]
  - Diarrhoea [Unknown]
  - Rash erythematous [Unknown]
  - Malaise [Unknown]
  - Mucosal disorder [Unknown]
  - Oxygen saturation decreased [Unknown]
  - Hypotension [Unknown]
  - Bradycardia [Unknown]
  - Ventricular dysfunction [Unknown]
  - Dehydration [Unknown]
